FAERS Safety Report 16513765 (Version 2)
Quarter: 2019Q4

REPORT INFORMATION
  Report Type: Spontaneous
  Country: AR (occurrence: AR)
  Receive Date: 20190702
  Receipt Date: 20191014
  Transmission Date: 20200122
  Serious: Yes (Hospitalization, Other)
  Sender: FDA-Public Use
  Company Number: AR-PFIZER INC-2019277322

PATIENT
  Age: 78 Year
  Sex: Female

DRUGS (1)
  1. XELJANZ [Suspect]
     Active Substance: TOFACITINIB CITRATE
     Dosage: UNK

REACTIONS (14)
  - Pyrexia [Unknown]
  - Urinary tract infection [Unknown]
  - Hypotension [Unknown]
  - Syncope [Unknown]
  - Localised infection [Unknown]
  - Abdominal discomfort [Unknown]
  - Influenza [Unknown]
  - Hypertension [Unknown]
  - Peripheral swelling [Unknown]
  - Malaise [Unknown]
  - Joint swelling [Unknown]
  - Anaemia [Unknown]
  - Nausea [Unknown]
  - Cerebrovascular accident [Unknown]
